FAERS Safety Report 12448479 (Version 1)
Quarter: 2016Q2

REPORT INFORMATION
  Report Type: Spontaneous
  Country: US (occurrence: US)
  Receive Date: 20160608
  Receipt Date: 20160608
  Transmission Date: 20160815
  Serious: No
  Sender: FDA-Public Use
  Company Number: US-EISAI MEDICAL RESEARCH-EC-2016-017380

PATIENT
  Age: 4 Year
  Sex: Female

DRUGS (8)
  1. BANZEL [Suspect]
     Active Substance: RUFINAMIDE
     Indication: SEIZURE
     Dosage: UNKNOWN
     Route: 048
     Dates: start: 20150902, end: 20151001
  2. SABRIL [Suspect]
     Active Substance: VIGABATRIN
     Dosage: 500 MG, AM AND 750 MG, PM
     Route: 048
     Dates: start: 20150919, end: 2015
  3. SABRIL [Suspect]
     Active Substance: VIGABATRIN
     Dosage: 750 MG, PM
     Route: 048
     Dates: start: 2015
  4. KLONOPIN [Concomitant]
     Active Substance: CLONAZEPAM
     Indication: PRODUCT USED FOR UNKNOWN INDICATION
     Route: 065
  5. SABRIL [Suspect]
     Active Substance: VIGABATRIN
     Indication: INFANTILE SPASMS
     Dosage: UNKNOWN
     Route: 048
     Dates: start: 20140930
  6. TOPAMAX [Concomitant]
     Active Substance: TOPIRAMATE
     Indication: PRODUCT USED FOR UNKNOWN INDICATION
     Route: 065
  7. SABRIL [Suspect]
     Active Substance: VIGABATRIN
     Dosage: WEAN OFF (15 ML, AM AND 20 ML, PM)
     Route: 048
  8. VALIUM [Concomitant]
     Active Substance: DIAZEPAM
     Indication: PRODUCT USED FOR UNKNOWN INDICATION
     Route: 065

REACTIONS (3)
  - Respiratory disorder [Unknown]
  - Pneumonia aspiration [Unknown]
  - Salivary hypersecretion [Unknown]

NARRATIVE: CASE EVENT DATE: 2015
